FAERS Safety Report 14037520 (Version 2)
Quarter: 2017Q4

REPORT INFORMATION
  Report Type: Report from Study
  Country: JP (occurrence: JP)
  Receive Date: 20171004
  Receipt Date: 20171031
  Transmission Date: 20180321
  Serious: Yes (Death)
  Sender: FDA-Public Use
  Company Number: JP-AMGEN-JPNCT2017149511

PATIENT
  Age: 80 Year
  Sex: Male
  Weight: 55 kg

DRUGS (14)
  1. CILOSTAZOL. [Concomitant]
     Active Substance: CILOSTAZOL
     Indication: PERIPHERAL ARTERIAL OCCLUSIVE DISEASE
     Dosage: 200 MG, UNK
     Route: 048
     Dates: end: 20160407
  2. TRAZENTA [Concomitant]
     Active Substance: LINAGLIPTIN
     Indication: DIABETES MELLITUS
     Dosage: 5 MG, UNK
     Route: 048
     Dates: end: 20160407
  3. GOODMIN [Concomitant]
     Active Substance: BROTIZOLAM
     Indication: INSOMNIA
     Dosage: 0.25 MG, UNK
     Route: 048
     Dates: end: 20160407
  4. OLOPATADINE HYDROCHLORIDE. [Concomitant]
     Active Substance: OLOPATADINE HYDROCHLORIDE
     Indication: RHINITIS ALLERGIC
     Dosage: 10 MG, UNK
     Route: 048
     Dates: end: 20160407
  5. REBAMIPIDE [Concomitant]
     Active Substance: REBAMIPIDE
     Indication: GASTROINTESTINAL MUCOSAL DISORDER
     Dosage: 300 MG, UNK
     Route: 048
     Dates: end: 20160407
  6. DARBEPOETIN ALFA [Suspect]
     Active Substance: DARBEPOETIN ALFA
     Indication: MYELODYSPLASTIC SYNDROME
     Dosage: 240 MUG, QWK
     Route: 058
     Dates: start: 20160106, end: 20160323
  7. PLAVIX [Concomitant]
     Active Substance: CLOPIDOGREL BISULFATE
     Indication: PERIPHERAL ARTERIAL OCCLUSIVE DISEASE
     Dosage: 75 MG, UNK
     Route: 048
     Dates: end: 20160407
  8. NEXIUM [Concomitant]
     Active Substance: ESOMEPRAZOLE MAGNESIUM
     Indication: GASTROINTESTINAL MUCOSAL DISORDER
     Dosage: 20 MG, UNK
     Route: 048
     Dates: end: 20160407
  9. DARBEPOETIN ALFA [Suspect]
     Active Substance: DARBEPOETIN ALFA
     Dosage: 240 MUG, UNK
     Route: 058
     Dates: start: 20160406, end: 20160406
  10. AMEZINIUM METILSULFATE [Concomitant]
     Active Substance: AMEZINIUM METILSULFATE
     Indication: PROCEDURAL HYPOTENSION
     Dosage: 20 MG, UNK
     Route: 048
     Dates: end: 20160407
  11. DROXIDOPA [Concomitant]
     Active Substance: DROXIDOPA
     Indication: PROCEDURAL HYPOTENSION
     Dosage: 100 MG, UNK
     Route: 048
     Dates: end: 20160407
  12. METHYCOBAL [Concomitant]
     Active Substance: METHYLCOBALAMIN
     Indication: DIABETIC NEUROPATHY
     Dosage: 1500 MUG, UNK
     Route: 048
     Dates: start: 20160307, end: 20160407
  13. PRECIPITATED CALCIUM CARBONATE [Concomitant]
     Active Substance: CALCIUM CARBONATE
     Indication: HYPERPHOSPHATAEMIA
     Dosage: 1000 MG, UNK
     Route: 048
     Dates: end: 20160407
  14. ROZEREM [Concomitant]
     Active Substance: RAMELTEON
     Indication: INSOMNIA
     Dosage: 8 MG, UNK
     Route: 048
     Dates: end: 20160407

REACTIONS (1)
  - Death [Fatal]

NARRATIVE: CASE EVENT DATE: 20160409
